FAERS Safety Report 8163925-X (Version None)
Quarter: 2012Q1

REPORT INFORMATION
  Report Type: 
  Country: None (occurrence: None)
  Receive Date: 20120224
  Receipt Date: 20120216
  Transmission Date: 20120608
  Serious: Yes (Hospitalization, Other)
  Sender: FDA-Public Use
  Company Number: JP-JNJFOC-20120210810

PATIENT
  Age: 33 Year
  Sex: Female

DRUGS (2)
  1. LEVOFLOXACIN [Suspect]
     Dosage: AT 16:00
     Route: 048
     Dates: start: 20120214
  2. LEVOFLOXACIN [Suspect]
     Indication: OROPHARYNGEAL PAIN
     Route: 048
     Dates: start: 20120125, end: 20120125

REACTIONS (2)
  - ANAPHYLACTIC SHOCK [None]
  - INTENTIONAL DRUG MISUSE [None]
